FAERS Safety Report 15667813 (Version 1)
Quarter: 2018Q4

REPORT INFORMATION
  Report Type: Spontaneous
  Country: US (occurrence: US)
  Receive Date: 20181128
  Receipt Date: 20181128
  Transmission Date: 20190205
  Serious: Yes (Death)
  Sender: FDA-Public Use
  Company Number: US-LUNDBECK-DKLU2057531

PATIENT
  Age: 74 Year
  Sex: Male

DRUGS (11)
  1. NORTHERA [Suspect]
     Active Substance: DROXIDOPA
     Indication: ORTHOSTATIC HYPOTENSION
     Dosage: SCHEDULE  B
     Route: 048
     Dates: start: 2016
  2. NORTHERA [Suspect]
     Active Substance: DROXIDOPA
     Dosage: TITRATION: DAY 1-2
     Route: 048
     Dates: start: 201811
  3. NORTHERA [Suspect]
     Active Substance: DROXIDOPA
     Dosage: SCHEDULE B
     Route: 048
     Dates: start: 20181108
  4. NORTHERA [Suspect]
     Active Substance: DROXIDOPA
     Dosage: TITRATION: DAY 5-6
     Route: 048
     Dates: start: 2018
  5. NORTHERA [Suspect]
     Active Substance: DROXIDOPA
     Dosage: TITRATION: DAY 9-10: 5 CAPS 3X DAILY. DAY 11 AND ON: 6 CAPS 3X DAILY.
     Route: 048
     Dates: start: 2018
  6. NORTHERA [Suspect]
     Active Substance: DROXIDOPA
     Route: 048
     Dates: start: 20181108
  7. NORTHERA [Suspect]
     Active Substance: DROXIDOPA
     Dosage: TITRATION: DAY 3-4
     Route: 048
     Dates: start: 2018
  8. NORTHERA [Suspect]
     Active Substance: DROXIDOPA
     Dosage: TITRATION:DAY 9-10
     Route: 048
     Dates: start: 2018
  9. NORTHERA [Suspect]
     Active Substance: DROXIDOPA
     Dosage: SCHEDULE B
     Route: 048
     Dates: start: 20181108
  10. NORTHERA [Suspect]
     Active Substance: DROXIDOPA
     Dosage: TITRATION:DAY 7-8
     Route: 048
     Dates: start: 2018
  11. NORTHERA [Suspect]
     Active Substance: DROXIDOPA
     Dosage: TITRATION:DAY 11 AND ON
     Route: 048
     Dates: start: 2018

REACTIONS (1)
  - Death [Fatal]

NARRATIVE: CASE EVENT DATE: 20181125
